FAERS Safety Report 7001786-2 (Version None)
Quarter: 2010Q3

REPORT INFORMATION
  Report Type: 
  Country: None (occurrence: None)
  Receive Date: 20100920
  Receipt Date: 20070504
  Transmission Date: 20110219
  Serious: Yes (Other)
  Sender: FDA-Public Use
  Company Number: US-ASTRAZENECA-2006UW27683

PATIENT
  Age: 11530 Day
  Sex: Female
  Weight: 103 kg

DRUGS (27)
  1. SEROQUEL [Suspect]
     Indication: DEPRESSION
     Dosage: 25 MG - 300 MG
     Route: 048
     Dates: start: 20040404
  2. SEROQUEL [Suspect]
     Indication: INSOMNIA
     Dosage: 25 MG - 300 MG
     Route: 048
     Dates: start: 20040404
  3. SEROQUEL [Suspect]
     Indication: SLEEP DISORDER
     Dosage: 25 MG - 300 MG
     Route: 048
     Dates: start: 20040404
  4. SEROQUEL [Suspect]
     Route: 048
     Dates: start: 20041104, end: 20050602
  5. SEROQUEL [Suspect]
     Route: 048
     Dates: start: 20041104, end: 20050602
  6. SEROQUEL [Suspect]
     Route: 048
     Dates: start: 20041104, end: 20050602
  7. SEROQUEL [Suspect]
     Route: 048
     Dates: start: 20050602, end: 20060801
  8. SEROQUEL [Suspect]
     Route: 048
     Dates: start: 20050602, end: 20060801
  9. SEROQUEL [Suspect]
     Route: 048
     Dates: start: 20050602, end: 20060801
  10. SEROQUEL [Suspect]
     Dosage: 100-200MG
     Route: 048
     Dates: start: 20060301
  11. SEROQUEL [Suspect]
     Dosage: 100-200MG
     Route: 048
     Dates: start: 20060301
  12. SEROQUEL [Suspect]
     Dosage: 100-200MG
     Route: 048
     Dates: start: 20060301
  13. GEODON [Concomitant]
     Dosage: 40MG-60MG
     Dates: start: 20050504, end: 20060317
  14. OTHER PSYCHIATRIC MEDICATION [Concomitant]
  15. TRAZODONE HCL [Concomitant]
     Indication: INSOMNIA
     Dosage: 50 MG - 100 MG
     Dates: start: 20030205
  16. LAMICTAL [Concomitant]
     Route: 048
     Dates: start: 20031208
  17. METFORMIN [Concomitant]
     Route: 048
     Dates: start: 20060530
  18. ESTRATEST [Concomitant]
     Dosage: 0.625/1.25 MG, DAILY
     Route: 048
     Dates: start: 20031208
  19. LORTAB [Concomitant]
     Indication: PAIN
     Dosage: 5/500 MG AS REQUIRED
     Route: 048
     Dates: start: 20060927
  20. LEXAPRO [Concomitant]
     Dosage: 10 MG - 20 MG
     Route: 048
     Dates: start: 20031208
  21. LITHIUM [Concomitant]
     Dosage: 100 MG - 300 MG
     Route: 048
     Dates: start: 20040406
  22. ZYPREXA [Concomitant]
     Route: 048
     Dates: start: 20040406
  23. XANAX [Concomitant]
     Route: 048
     Dates: start: 20040406
  24. AMBIEN [Concomitant]
     Route: 048
     Dates: start: 20040406
  25. VALIUM [Concomitant]
     Route: 048
     Dates: start: 20040731
  26. WELLBUTRIN [Concomitant]
     Dates: start: 20061214
  27. ACTOS [Concomitant]
     Route: 048
     Dates: start: 20060126

REACTIONS (2)
  - DIABETES MELLITUS [None]
  - TYPE 2 DIABETES MELLITUS [None]
